FAERS Safety Report 14720785 (Version 1)
Quarter: 2018Q2

REPORT INFORMATION
  Report Type: Spontaneous
  Country: US (occurrence: US)
  Receive Date: 20180405
  Receipt Date: 20180405
  Transmission Date: 20180711
  Serious: No
  Sender: FDA-Public Use
  Company Number: US-PFIZER INC-2018137695

PATIENT
  Age: 65 Year
  Sex: Male

DRUGS (2)
  1. METRONIDAZOLE. [Suspect]
     Active Substance: METRONIDAZOLE
     Dosage: UNK
  2. BUSULFAN. [Suspect]
     Active Substance: BUSULFAN
     Indication: CHEMOTHERAPY
     Dosage: UNK

REACTIONS (2)
  - Drug hypersensitivity [Unknown]
  - Contraindicated product administered [Unknown]
